FAERS Safety Report 4379596-4 (Version None)
Quarter: 2004Q2

REPORT INFORMATION
  Report Type: 
  Country: None (occurrence: None)
  Receive Date: 20040414
  Receipt Date: 20040108
  Transmission Date: 20050107
  Serious: No
  Sender: FDA-Public Use
  Company Number: 2004S1000021

PATIENT
  Sex: Female

DRUGS (1)
  1. CUBICIN [Suspect]
     Indication: SKIN INFECTION
     Dosage: IV
     Route: 042

REACTIONS (1)
  - MYOPATHY [None]
